FAERS Safety Report 14854621 (Version 3)
Quarter: 2019Q1

REPORT INFORMATION
  Report Type: Report from Study
  Country: TW (occurrence: TW)
  Receive Date: 20180507
  Receipt Date: 20190217
  Transmission Date: 20190417
  Serious: Yes (Other)
  Sender: FDA-Public Use
  Company Number: PHHY2018TW075169

PATIENT
  Age: 44 Year
  Sex: Female

DRUGS (12)
  1. TASIGNA [Suspect]
     Active Substance: NILOTINIB
     Dosage: 450 MG, UNK
     Route: 048
     Dates: start: 20160604
  2. LORAZEPAM. [Concomitant]
     Active Substance: LORAZEPAM
     Indication: PROPHYLAXIS
     Dosage: 1 MG, UNK
     Route: 048
     Dates: start: 20160423, end: 20160729
  3. NOLVADEX [Concomitant]
     Active Substance: TAMOXIFEN CITRATE
     Indication: BREAST CANCER IN SITU
     Dosage: 10 MG, UNK (3 MONTHS BEFORE VISIT 1)
     Route: 048
     Dates: end: 20160729
  4. NOLVADEX [Concomitant]
     Active Substance: TAMOXIFEN CITRATE
     Dosage: 10 MG, UNK
     Route: 048
     Dates: start: 20160813
  5. IWELL [Concomitant]
     Indication: PROPHYLAXIS
     Dosage: 1 DF, UNK
     Route: 048
     Dates: start: 20160730, end: 20160813
  6. INFLORAN [Concomitant]
     Indication: PROPHYLAXIS
     Dosage: 250 MG, UNK
     Route: 048
     Dates: start: 20180501, end: 20180601
  7. MIYARISAN BM [Concomitant]
     Dosage: 40 MG, UNK
     Route: 048
     Dates: start: 20180501, end: 20180601
  8. FLUDIAZEPAM [Concomitant]
     Active Substance: FLUDIAZEPAM
     Indication: PROPHYLAXIS
     Dosage: 0.25 MG, UNK
     Route: 048
     Dates: start: 20160604, end: 20160729
  9. VITACOMB [Concomitant]
     Indication: PROPHYLAXIS
     Dosage: 1 DF, UNK
     Route: 048
     Dates: start: 20170211, end: 20170508
  10. TASIGNA [Suspect]
     Active Substance: NILOTINIB
     Indication: CHRONIC MYELOID LEUKAEMIA
     Dosage: 600 MG, UNK
     Route: 048
     Dates: start: 20160304, end: 20160603
  11. MIYARISAN BM [Concomitant]
     Indication: PROPHYLAXIS
     Dosage: 40 MG (PACK), UNK
     Route: 048
     Dates: start: 20161126, end: 20170110
  12. VITACOMB [Concomitant]
     Indication: IRON DEFICIENCY ANAEMIA
     Dosage: UNK
     Route: 048
     Dates: start: 20180501, end: 20180601

REACTIONS (2)
  - Electrocardiogram QT prolonged [Recovered/Resolved]
  - Hyperlipidaemia [Unknown]

NARRATIVE: CASE EVENT DATE: 20160604
